FAERS Safety Report 11916319 (Version 1)
Quarter: 2016Q1

REPORT INFORMATION
  Report Type: Spontaneous
  Country: US (occurrence: US)
  Receive Date: 20160114
  Receipt Date: 20160114
  Transmission Date: 20160526
  Serious: No
  Sender: FDA-Public Use
  Company Number: US-BIOCRYST PHARMACEUTICALS, INC.-2015BCR00139

PATIENT

DRUGS (1)
  1. RAPIVAB [Suspect]
     Active Substance: PERAMIVIR
     Indication: INFLUENZA
     Dosage: 100 MG, ONCE
     Route: 065
     Dates: start: 20150928, end: 20150928

REACTIONS (1)
  - Drug ineffective [Not Recovered/Not Resolved]

NARRATIVE: CASE EVENT DATE: 20150928
